FAERS Safety Report 24108868 (Version 2)
Quarter: 2024Q3

REPORT INFORMATION
  Report Type: Spontaneous
  Country: CN (occurrence: CN)
  Receive Date: 20240718
  Receipt Date: 20240730
  Transmission Date: 20241017
  Serious: Yes (Other)
  Sender: RANBAXY
  Company Number: CN-SUN PHARMACEUTICAL INDUSTRIES LTD-2024R1-457061

PATIENT
  Age: 79 Year
  Sex: Female

DRUGS (4)
  1. CAPECITABINE [Suspect]
     Active Substance: CAPECITABINE
     Indication: Metastases to liver
     Dosage: 800 MILLIGRAM/SQ. METER, BID (DAYS 1-14 OF THE 21 DAY CYCLE)
     Route: 065
     Dates: start: 202006
  2. CAPECITABINE [Suspect]
     Active Substance: CAPECITABINE
     Indication: HER2 positive breast cancer
  3. PYROTINIB [Suspect]
     Active Substance: PYROTINIB
     Indication: Metastases to liver
     Dosage: UNK 240-320 MG DAILY (DAYS 1-14 OF THE 21 DAY CYCLE)
     Route: 065
     Dates: start: 202006
  4. PYROTINIB [Suspect]
     Active Substance: PYROTINIB
     Indication: HER2 positive breast cancer

REACTIONS (3)
  - Therapy partial responder [Unknown]
  - Leukopenia [Unknown]
  - Diarrhoea [Unknown]
